FAERS Safety Report 7960145-6 (Version None)
Quarter: 2011Q4

REPORT INFORMATION
  Report Type: 
  Country: None (occurrence: None)
  Receive Date: 20111206
  Receipt Date: 20111130
  Transmission Date: 20120403
  Serious: Yes (Hospitalization)
  Sender: FDA-Public Use
  Company Number: PHHY2011AU100924

PATIENT
  Sex: Female
  Weight: 69 kg

DRUGS (3)
  1. MINAX [Concomitant]
     Dosage: 0.5 DF, BID
  2. NEXIUM [Concomitant]
     Dosage: 1 DF, QD
  3. ZOLEDRONOC ACID [Suspect]
     Dosage: 5 MG
     Route: 042
     Dates: start: 20101019

REACTIONS (2)
  - ARTHRITIS BACTERIAL [None]
  - SEPSIS [None]
